FAERS Safety Report 4683254-6 (Version None)
Quarter: 2005Q2

REPORT INFORMATION
  Report Type: 
  Country: None (occurrence: None)
  Receive Date: 20050602
  Receipt Date: 20050207
  Transmission Date: 20051028
  Serious: No
  Sender: FDA-Public Use
  Company Number: USA050290134

PATIENT
  Age: 46 Year
  Sex: Female
  Weight: 59 kg

DRUGS (7)
  1. CYMBALTA [Suspect]
     Indication: SUICIDAL IDEATION
     Dosage: 90 MG DAY
     Dates: start: 20050118
  2. PROVIGIL [Concomitant]
  3. CLONAZEPAM [Concomitant]
  4. PHENOBARBITAL [Concomitant]
  5. LASIX [Concomitant]
  6. FLUOXETINE [Concomitant]
  7. POTASSIUM CHLORIDE [Concomitant]

REACTIONS (1)
  - PRESCRIBED OVERDOSE [None]
